FAERS Safety Report 5152337-9 (Version None)
Quarter: 2006Q4

REPORT INFORMATION
  Report Type: 
  Country: None (occurrence: None)
  Receive Date: 20061116
  Receipt Date: 20060920
  Transmission Date: 20070319
  Serious: Yes (Other)
  Sender: FDA-Public Use
  Company Number: 2006AP04359

PATIENT
  Age: 21085 Day
  Sex: Female

DRUGS (3)
  1. FASLODEX [Suspect]
     Indication: BREAST CANCER
     Route: 030
     Dates: start: 20060728
  2. CHINESE HERB MEDICINE [Concomitant]
     Indication: HYPERTENSION
     Route: 048
     Dates: start: 19960101
  3. TAMOXIFEN CITRATE [Concomitant]
     Route: 048
     Dates: start: 20051101

REACTIONS (2)
  - ENDOMETRIAL HYPERTROPHY [None]
  - VAGINAL HAEMORRHAGE [None]
